FAERS Safety Report 8741995 (Version 3)
Quarter: 2014Q3

REPORT INFORMATION
  Report Type: Report from Study
  Country: US (occurrence: US)
  Receive Date: 20120824
  Receipt Date: 20140904
  Transmission Date: 20150326
  Serious: Yes (Other)
  Sender: FDA-Public Use
  Company Number: US-009507513-1208USA008139

PATIENT
  Age: 79 Year
  Sex: Male

DRUGS (5)
  1. OLMESARTAN MEDOXOMIL [Concomitant]
     Active Substance: OLMESARTAN MEDOXOMIL
     Indication: HYPERTENSION
     Dosage: UNK
     Dates: start: 20091113
  2. DE-117 [Suspect]
     Active Substance: INVESTIGATIONAL PRODUCT
     Indication: OPEN ANGLE GLAUCOMA
     Dosage: 2 GTT, QD
     Route: 047
     Dates: start: 20120801, end: 20120802
  3. LOVASTATIN. [Concomitant]
     Active Substance: LOVASTATIN
     Indication: HYPERCHOLESTEROLAEMIA
     Dosage: UNK
     Dates: start: 199808
  4. TAFLUPROST [Suspect]
     Active Substance: TAFLUPROST
     Indication: OPEN ANGLE GLAUCOMA
     Dosage: 1 GTT, QD (0.0015% UD EYE DROPS)
     Route: 047
     Dates: start: 20120801, end: 20120802
  5. BRINZOLAMIDE [Concomitant]
     Active Substance: BRINZOLAMIDE
     Indication: OPEN ANGLE GLAUCOMA
     Dosage: UNK
     Dates: start: 20120502, end: 20120726

REACTIONS (1)
  - Anterior chamber flare [Recovered/Resolved]

NARRATIVE: CASE EVENT DATE: 20120803
